FAERS Safety Report 6653343-5 (Version None)
Quarter: 2010Q1

REPORT INFORMATION
  Report Type: 
  Country: None (occurrence: None)
  Receive Date: 20100326
  Receipt Date: 20091005
  Transmission Date: 20100710
  Serious: Yes (Hospitalization)
  Sender: FDA-Public Use
  Company Number: PHHY2009TW61019

PATIENT

DRUGS (1)
  1. EXJADE [Suspect]

REACTIONS (4)
  - ABDOMINAL DISTENSION [None]
  - NASOPHARYNGITIS [None]
  - NAUSEA [None]
  - PNEUMONIA [None]
